FAERS Safety Report 21258132 (Version 1)
Quarter: 2022Q3

REPORT INFORMATION
  Report Type: Spontaneous
  Country: CN (occurrence: None)
  Receive Date: 20220826
  Receipt Date: 20220826
  Transmission Date: 20221027
  Serious: Yes (Life-Threatening, Hospitalization)
  Sender: FDA-Public Use
  Company Number: CN-ROCHE-3166275

PATIENT
  Age: 32 Year
  Sex: Female
  Weight: 65 kg

DRUGS (2)
  1. MABTHERA [Suspect]
     Active Substance: RITUXIMAB
     Indication: Platelet count decreased
     Route: 041
     Dates: start: 20220811, end: 20220811
  2. SODIUM CHLORIDE [Concomitant]
     Active Substance: SODIUM CHLORIDE
     Route: 041
     Dates: start: 20220811, end: 20220811

REACTIONS (4)
  - Laryngitis [Recovering/Resolving]
  - Rash [Recovering/Resolving]
  - Pruritus [Recovered/Resolved]
  - Intentional product use issue [Unknown]

NARRATIVE: CASE EVENT DATE: 20220811
